FAERS Safety Report 5254064-6 (Version None)
Quarter: 2007Q1

REPORT INFORMATION
  Report Type: 
  Country: None (occurrence: None)
  Receive Date: 20070302
  Receipt Date: 20070220
  Transmission Date: 20070707
  Serious: Yes (Other)
  Sender: FDA-Public Use
  Company Number: PHEH2007US02303

PATIENT
  Age: 86 Year
  Sex: Female

DRUGS (1)
  1. ENABLEX [Suspect]
     Indication: HYPERTONIC BLADDER
     Dosage: 7.5 MG, QD
     Route: 048
     Dates: start: 20070101, end: 20070101

REACTIONS (7)
  - AMNESIA [None]
  - ANURIA [None]
  - BACK PAIN [None]
  - DIABETES MELLITUS INADEQUATE CONTROL [None]
  - LOSS OF CONSCIOUSNESS [None]
  - NECK PAIN [None]
  - POLLAKIURIA [None]
